FAERS Safety Report 6637643-0 (Version None)
Quarter: 2010Q1

REPORT INFORMATION
  Report Type: 
  Country: None (occurrence: None)
  Receive Date: 20100301
  Receipt Date: 20091029
  Transmission Date: 20100710
  Serious: Yes (Hospitalization)
  Sender: FDA-Public Use
  Company Number: RB-23635-2009

PATIENT
  Age: 36 Year
  Sex: Female

DRUGS (6)
  1. SUBOXONE [Suspect]
     Indication: DRUG DEPENDENCE
     Dosage: 12 MG SUBLINGUAL, 8 MG TID SUBLINGUAL, 8 MG QD SUBLINGUAL
     Route: 060
     Dates: start: 20091023, end: 20091023
  2. SUBOXONE [Suspect]
     Indication: DRUG DEPENDENCE
     Dosage: 12 MG SUBLINGUAL, 8 MG TID SUBLINGUAL, 8 MG QD SUBLINGUAL
     Route: 060
     Dates: start: 20091024, end: 20091024
  3. SUBOXONE [Suspect]
     Indication: DRUG DEPENDENCE
     Dosage: 12 MG SUBLINGUAL, 8 MG TID SUBLINGUAL, 8 MG QD SUBLINGUAL
     Route: 060
     Dates: start: 20091025, end: 20091025
  4. KLONOPIN [Concomitant]
  5. SEROQUEL [Concomitant]
  6. REMERON [Concomitant]

REACTIONS (1)
  - DRUG WITHDRAWAL SYNDROME [None]
